FAERS Safety Report 14418291 (Version 1)
Quarter: 2018Q1

REPORT INFORMATION
  Report Type: Spontaneous
  Country: US (occurrence: US)
  Receive Date: 20180119
  Receipt Date: 20180119
  Transmission Date: 20180509
  Serious: Yes (Other)
  Sender: FDA-Public Use
  Company Number: None

PATIENT
  Age: 7 Year
  Sex: Male
  Weight: 25.65 kg

DRUGS (4)
  1. OSELTAMIVIR PHOSPHATE. [Suspect]
     Active Substance: OSELTAMIVIR PHOSPHATE
     Indication: INFLUENZA
     Dosage: ?          QUANTITY:2 TEASPOON(S);?
     Route: 048
     Dates: start: 20180118, end: 20180119
  2. NEBULIZER MACHINE [Concomitant]
  3. ALBUTEROL. [Concomitant]
     Active Substance: ALBUTEROL
  4. IBUPROPHEN [Concomitant]
     Active Substance: IBUPROFEN

REACTIONS (5)
  - Screaming [None]
  - Crying [None]
  - Tremor [None]
  - Vomiting [None]
  - Hallucination [None]

NARRATIVE: CASE EVENT DATE: 20180118
